FAERS Safety Report 6510239-7 (Version None)
Quarter: 2009Q4

REPORT INFORMATION
  Report Type: 
  Country: None (occurrence: None)
  Receive Date: 20091221
  Receipt Date: 20091221
  Transmission Date: 20100525
  Serious: Yes (Other)
  Sender: FDA-Public Use
  Company Number: None

PATIENT
  Age: 48 Year
  Sex: Female
  Weight: 58.9676 kg

DRUGS (1)
  1. LAMOTRAGINE 200 MG TORRENT PHARMA [Suspect]
     Indication: EPILEPSY
     Dosage: 300 MG EVENING PO 400 MG MORNING PO
     Route: 048
     Dates: start: 20090901, end: 20090905

REACTIONS (1)
  - EPILEPSY [None]
